FAERS Safety Report 20358330 (Version 2)
Quarter: 2022Q1

REPORT INFORMATION
  Report Type: Spontaneous
  Country: US (occurrence: US)
  Receive Date: 20220120
  Receipt Date: 20220131
  Transmission Date: 20220423
  Serious: Yes (Other)
  Sender: FDA-Public Use
  Company Number: US-PFIZER INC-202200029073

PATIENT
  Age: 62 Year
  Sex: Female
  Weight: 69.85 kg

DRUGS (2)
  1. IBRANCE [Suspect]
     Active Substance: PALBOCICLIB
     Indication: Breast cancer female
     Dosage: 125 MG
     Dates: start: 20220114
  2. LETROZOLE [Suspect]
     Active Substance: LETROZOLE
     Indication: Hormone therapy
     Dosage: 2.5 MG, 1X/DAY
     Dates: start: 20211229

REACTIONS (6)
  - Pneumonia [Recovered/Resolved]
  - Neoplasm progression [Unknown]
  - Pain [Unknown]
  - Weight decreased [Unknown]
  - Dizziness [Unknown]
  - Abdominal pain [Unknown]

NARRATIVE: CASE EVENT DATE: 20220101
